FAERS Safety Report 8019144-0 (Version None)
Quarter: 2011Q4

REPORT INFORMATION
  Report Type: 
  Country: None (occurrence: None)
  Receive Date: 20111229
  Receipt Date: 20111213
  Transmission Date: 20120403
  Serious: Yes (Other)
  Sender: FDA-Public Use
  Company Number: 2011-000043

PATIENT
  Sex: Female

DRUGS (5)
  1. ACTONEL [Suspect]
     Indication: OSTEOPOROSIS
     Dosage: DOSAGE/FREQUENCY, ORAL
     Route: 048
  2. FOSAMAX [Concomitant]
     Indication: OSTEOPOROSIS
     Dosage: DOSAGE/REGIMEN UNKNOWN, ORAL
     Route: 048
  3. FOSAMAX PLUS D [Suspect]
     Indication: OSTEOPOROSIS
     Dosage: DOSAGE/FREQUENCY UNKNOWN, ORAL
     Route: 048
  4. ALENDRONATE SODIUM [Suspect]
     Indication: OSTEOPOROSIS
     Dosage: DOSAGE/REGIMEN UNKNOWN, ORAL
     Route: 048
  5. BONIVA [Suspect]
     Indication: OSTEOPOROSIS
     Dosage: DOSAGE/FREQUENCY UNKNOWN, ORAL
     Route: 048

REACTIONS (5)
  - LOW TURNOVER OSTEOPATHY [None]
  - FEMUR FRACTURE [None]
  - SKELETAL INJURY [None]
  - PAIN [None]
  - STRESS FRACTURE [None]
